FAERS Safety Report 7312111-1 (Version None)
Quarter: 2011Q1

REPORT INFORMATION
  Report Type: 
  Country: None (occurrence: None)
  Receive Date: 20110224
  Receipt Date: 20110210
  Transmission Date: 20110831
  Serious: Yes (Other)
  Sender: FDA-Public Use
  Company Number: PHHY2011JP11991

PATIENT
  Age: 70 Year
  Sex: Female

DRUGS (3)
  1. RIFAMPICIN SANDOZ [Suspect]
     Indication: LYMPH NODE TUBERCULOSIS
     Dosage: 150 MG, UNK
     Route: 048
  2. ETHAMBUTOL HYDROCHLORIDE [Concomitant]
     Indication: LYMPH NODE TUBERCULOSIS
     Route: 048
  3. ISONIAZID [Concomitant]
     Indication: LYMPH NODE TUBERCULOSIS

REACTIONS (2)
  - BLOOD PRESSURE INCREASED [None]
  - DRUG INTERACTION [None]
